FAERS Safety Report 7770443-7 (Version None)
Quarter: 2011Q3

REPORT INFORMATION
  Report Type: 
  Country: None (occurrence: None)
  Receive Date: 20110922
  Receipt Date: 20100827
  Transmission Date: 20111222
  Serious: No
  Sender: FDA-Public Use
  Company Number: US-ASTRAZENECA-2010SE40422

PATIENT
  Sex: Female
  Weight: 79.4 kg

DRUGS (6)
  1. SEROQUEL [Suspect]
     Route: 048
     Dates: start: 20100824
  2. VIT D [Concomitant]
  3. SEROQUEL [Suspect]
     Indication: SCHIZOPHRENIA
     Route: 048
  4. SEROQUEL [Suspect]
     Indication: DEPRESSION
     Route: 048
  5. SEROQUEL [Suspect]
     Route: 048
     Dates: start: 20100824
  6. FISH OIL [Concomitant]

REACTIONS (10)
  - SOMNOLENCE [None]
  - WRONG TECHNIQUE IN DRUG USAGE PROCESS [None]
  - MYALGIA [None]
  - VITAMIN D DEFICIENCY [None]
  - INCREASED APPETITE [None]
  - HALLUCINATION, AUDITORY [None]
  - ASTHENIA [None]
  - WEIGHT INCREASED [None]
  - FATIGUE [None]
  - PAIN IN EXTREMITY [None]
